FAERS Safety Report 12202101 (Version 2)
Quarter: 2016Q2

REPORT INFORMATION
  Report Type: Spontaneous
  Country: CA (occurrence: CA)
  Receive Date: 20160322
  Receipt Date: 20160421
  Transmission Date: 20160815
  Serious: Yes (Other)
  Sender: FDA-Public Use
  Company Number: CA-ROCHE-1728848

PATIENT
  Age: 77 Year
  Sex: Female

DRUGS (1)
  1. AVASTIN [Suspect]
     Active Substance: BEVACIZUMAB
     Indication: DIABETIC RETINOPATHY
     Route: 050
     Dates: start: 2015

REACTIONS (7)
  - Injection site pain [Not Recovered/Not Resolved]
  - Eyelid oedema [Recovered/Resolved]
  - Photopsia [Recovered/Resolved]
  - Blood glucose fluctuation [Not Recovered/Not Resolved]
  - Corneal abrasion [Recovered/Resolved]
  - Eye swelling [Recovered/Resolved]
  - Feeling of despair [Not Recovered/Not Resolved]

NARRATIVE: CASE EVENT DATE: 2015
